FAERS Safety Report 13722202 (Version 1)
Quarter: 2017Q3

REPORT INFORMATION
  Report Type: Spontaneous
  Country: US (occurrence: US)
  Receive Date: 20170706
  Receipt Date: 20170706
  Transmission Date: 20171127
  Serious: No
  Sender: FDA-Public Use
  Company Number: US-GLAXOSMITHKLINE-US2017100063

PATIENT
  Age: 84 Year
  Sex: Female

DRUGS (1)
  1. VOLTAREN [Suspect]
     Active Substance: DICLOFENAC SODIUM
     Indication: PAIN IN EXTREMITY
     Dosage: UNK
     Route: 061
     Dates: start: 2016

REACTIONS (7)
  - Muscle spasms [Recovered/Resolved]
  - Application site reaction [Not Recovered/Not Resolved]
  - Off label use [Unknown]
  - Drug effective for unapproved indication [Unknown]
  - Blood potassium decreased [Recovered/Resolved]
  - Skin tightness [Not Recovered/Not Resolved]
  - Peripheral swelling [Recovered/Resolved]
